FAERS Safety Report 9459937 (Version 1)
Quarter: 2013Q3

REPORT INFORMATION
  Report Type: Spontaneous
  Country: US (occurrence: US)
  Receive Date: 20130815
  Receipt Date: 20130815
  Transmission Date: 20140515
  Serious: Yes (Hospitalization, Other)
  Sender: FDA-Public Use
  Company Number: US-PFIZER INC-2013236246

PATIENT
  Age: 78 Year
  Sex: Female
  Weight: 62.59 kg

DRUGS (2)
  1. LIPITOR [Suspect]
     Indication: BLOOD CHOLESTEROL INCREASED
     Dosage: 10 MG, 1X/DAY
     Route: 048
  2. ATENOLOL [Concomitant]
     Dosage: 25 MG, 2X/DAY

REACTIONS (3)
  - Transient ischaemic attack [Unknown]
  - Myasthenia gravis [Unknown]
  - Laboratory test abnormal [Unknown]
